FAERS Safety Report 5096762-3 (Version None)
Quarter: 2006Q3

REPORT INFORMATION
  Report Type: 
  Country: None (occurrence: None)
  Receive Date: 20060831
  Receipt Date: 20060819
  Transmission Date: 20061208
  Serious: Yes (Other)
  Sender: FDA-Public Use
  Company Number: 2006085825

PATIENT
  Age: 80 Year
  Sex: Female
  Weight: 45.3597 kg

DRUGS (13)
  1. ZITHROMAX [Suspect]
     Indication: TOOTH ABSCESS
     Dosage: 250 MG (250 MG, 1 IN 1 D), ORAL
     Route: 048
     Dates: start: 20060703, end: 20060705
  2. MULTIVITAMIN [Concomitant]
  3. CALCIUM GLUCONATE [Concomitant]
  4. ENZYMES [Concomitant]
  5. LOPRESSOR [Concomitant]
  6. IMDUR [Concomitant]
  7. VITAMIN E [Concomitant]
  8. OPIUM TINCTURE [Concomitant]
  9. VITAMIN B-12 [Concomitant]
  10. CATAPRES-TTS-1 [Concomitant]
  11. ZESTRIL [Concomitant]
  12. IMODIUM [Concomitant]
  13. MICARDIS [Concomitant]

REACTIONS (8)
  - ABASIA [None]
  - ABDOMINAL DISTENSION [None]
  - ABDOMINAL PAIN [None]
  - ABDOMINAL RIGIDITY [None]
  - FAECAL INCONTINENCE [None]
  - FLATULENCE [None]
  - HYPERAESTHESIA [None]
  - WEIGHT DECREASED [None]
